FAERS Safety Report 17689131 (Version 1)
Quarter: 2020Q2

REPORT INFORMATION
  Report Type: Spontaneous
  Country: CN (occurrence: CN)
  Receive Date: 20200421
  Receipt Date: 20200421
  Transmission Date: 20200714
  Serious: Yes (Other)
  Sender: FDA-Public Use
  Company Number: CN-B.I. PHARMACEUTICALS,INC./RIDGEFIELD-2020-BI-019843

PATIENT
  Age: 59 Year
  Sex: Male

DRUGS (1)
  1. PRADAXA [Suspect]
     Active Substance: DABIGATRAN ETEXILATE MESYLATE
     Indication: ATRIAL FIBRILLATION
     Route: 048

REACTIONS (7)
  - Lacunar infarction [Recovering/Resolving]
  - Loss of consciousness [Recovered/Resolved]
  - Cerebral artery occlusion [Unknown]
  - Cerebral infarction [Recovering/Resolving]
  - Syncope [Unknown]
  - Fall [Unknown]
  - Aphasia [Unknown]

NARRATIVE: CASE EVENT DATE: 20151106
